FAERS Safety Report 20181400 (Version 2)
Quarter: 2021Q4

REPORT INFORMATION
  Report Type: Spontaneous
  Country: ZA (occurrence: ZA)
  Receive Date: 20211214
  Receipt Date: 20211216
  Transmission Date: 20220304
  Serious: Yes (Other)
  Sender: FDA-Public Use
  Company Number: ZA-MLMSERVICE-20211124-3234351-1

PATIENT
  Age: 58 Year
  Sex: Male

DRUGS (10)
  1. DOXORUBICIN HYDROCHLORIDE [Suspect]
     Active Substance: DOXORUBICIN HYDROCHLORIDE
     Indication: Diffuse large B-cell lymphoma
     Dosage: 350 MG/M2, 7 CYCLIC (ON DAY 1)
     Route: 042
     Dates: start: 201904
  2. DOXORUBICIN HYDROCHLORIDE [Suspect]
     Active Substance: DOXORUBICIN HYDROCHLORIDE
     Dosage: 50 MG/M2, D1
  3. VINCRISTINE SULFATE [Suspect]
     Active Substance: VINCRISTINE SULFATE
     Indication: Diffuse large B-cell lymphoma
     Dosage: 9.8 MG/M2, 7 CYCLIC (D1)
     Route: 042
     Dates: start: 201904
  4. VINCRISTINE SULFATE [Suspect]
     Active Substance: VINCRISTINE SULFATE
     Dosage: 1.4 MG/M2, D1
     Route: 042
  5. RITUXIMAB [Suspect]
     Active Substance: RITUXIMAB
     Indication: Diffuse large B-cell lymphoma
     Dosage: 2625 MG/M2, 7 CYCLIC (ON D1)
     Route: 042
     Dates: start: 201904
  6. RITUXIMAB [Suspect]
     Active Substance: RITUXIMAB
     Dosage: 375 MG/M2, CYCLIC  DAY ONE (D1)
     Route: 042
  7. CYCLOPHOSPHAMIDE [Suspect]
     Active Substance: CYCLOPHOSPHAMIDE
     Indication: Diffuse large B-cell lymphoma
     Dosage: 5250 MG/M2, 7 CYCLIC (D1)
     Route: 042
     Dates: start: 201904
  8. CYCLOPHOSPHAMIDE [Suspect]
     Active Substance: CYCLOPHOSPHAMIDE
     Dosage: 750 MG/M2, D1,
     Route: 042
  9. PREDNISONE [Suspect]
     Active Substance: PREDNISONE
     Indication: Diffuse large B-cell lymphoma
     Dosage: 3500 MG, 7 CYCLIC ((100MG PO DAILY D1-D5)
     Route: 048
     Dates: start: 201904
  10. PREDNISONE [Suspect]
     Active Substance: PREDNISONE
     Dosage: 100 CYCLIC, PO DAILY D1-D5

REACTIONS (2)
  - Neutropenia [Unknown]
  - Cardiac dysfunction [Unknown]
